FAERS Safety Report 9881974 (Version 3)
Quarter: 2014Q1

REPORT INFORMATION
  Report Type: Report from Study
  Country: US (occurrence: US)
  Receive Date: 20140207
  Receipt Date: 20140227
  Transmission Date: 20141002
  Serious: Yes (Other)
  Sender: FDA-Public Use
  Company Number: US-BRISTOL-MYERS SQUIBB COMPANY-20115580

PATIENT
  Age: 81 Year
  Sex: Female
  Weight: 61.22 kg

DRUGS (1)
  1. ORENCIA [Suspect]
     Indication: RHEUMATOID ARTHRITIS
     Dosage: LAST INFUSION ON 12-NOV-2013
     Route: 042
     Dates: start: 201309, end: 20131112

REACTIONS (5)
  - Hyperkeratosis [Recovering/Resolving]
  - Cellulitis [Recovering/Resolving]
  - Fatigue [Unknown]
  - Influenza like illness [Unknown]
  - Drug ineffective [Unknown]
